FAERS Safety Report 18473659 (Version 1)
Quarter: 2020Q4

REPORT INFORMATION
  Report Type: Spontaneous
  Country: US (occurrence: US)
  Receive Date: 20201106
  Receipt Date: 20201106
  Transmission Date: 20210114
  Serious: Yes (Hospitalization)
  Sender: FDA-Public Use
  Company Number: US-PFIZER INC-2020429887

PATIENT
  Age: 63 Year
  Sex: Male

DRUGS (1)
  1. INLYTA [Suspect]
     Active Substance: AXITINIB
     Indication: RENAL CANCER
     Dosage: 3 MG, 2X/DAY (EVERY 12 HOURS)
     Route: 048

REACTIONS (3)
  - Syncope [Unknown]
  - Influenza [Unknown]
  - Asthenia [Unknown]

NARRATIVE: CASE EVENT DATE: 20201020
